FAERS Safety Report 7354047-6 (Version None)
Quarter: 2011Q1

REPORT INFORMATION
  Report Type: 
  Country: None (occurrence: None)
  Receive Date: 20110315
  Receipt Date: 20110309
  Transmission Date: 20110831
  Serious: Yes (Death, Other)
  Sender: FDA-Public Use
  Company Number: PHHY2011JP19611

PATIENT
  Sex: Male

DRUGS (1)
  1. GLEEVEC [Suspect]
     Indication: ACUTE LYMPHOCYTIC LEUKAEMIA
     Route: 048

REACTIONS (8)
  - RENAL IMPAIRMENT [None]
  - THROMBOTIC MICROANGIOPATHY [None]
  - HISTIOCYTOSIS HAEMATOPHAGIC [None]
  - DRUG INTERACTION [None]
  - RESPIRATORY SYNCYTIAL VIRUS TEST POSITIVE [None]
  - RENAL DISORDER [None]
  - DEATH [None]
  - NEOPLASM MALIGNANT [None]
